FAERS Safety Report 13587066 (Version 1)
Quarter: 2017Q2

REPORT INFORMATION
  Report Type: Spontaneous
  Country: FR (occurrence: FR)
  Receive Date: 20170526
  Receipt Date: 20170526
  Transmission Date: 20170830
  Serious: Yes (Life-Threatening)
  Sender: FDA-Public Use
  Company Number: FR-PFIZER INC-2017228250

PATIENT
  Age: 77 Year
  Sex: Male

DRUGS (19)
  1. VALACICLOVIR [Concomitant]
     Active Substance: VALACYCLOVIR HYDROCHLORIDE
     Indication: ANTIVIRAL PROPHYLAXIS
     Dosage: UNK
  2. ARACYTINE [Suspect]
     Active Substance: CYTARABINE
     Dosage: 945 MG, 2X/DAYON DAY1, 3 AND 5 (ON 03APR2017, 05APR2017, AND 07APR2017)
     Route: 037
     Dates: start: 20170403, end: 20170407
  3. KARDEGIC [Concomitant]
     Active Substance: ASPIRIN LYSINE
     Indication: CARDIOVASCULAR EVENT PROPHYLAXIS
     Dosage: UNK
     Route: 048
  4. PERMIXON [Concomitant]
     Active Substance: HERBALS\SAW PALMETTO
     Indication: BENIGN PROSTATIC HYPERPLASIA
     Dosage: UNK
  5. PANTOPRAZOLE [Concomitant]
     Active Substance: PANTOPRAZOLE
     Dosage: UNK
  6. METHOTREXATE BIODIM [Concomitant]
     Active Substance: METHOTREXATE
     Dosage: 15 MG, ON 21JAN2017, 23JAN2017 AND 25JAN2017
     Route: 037
     Dates: start: 20170121, end: 20170125
  7. DEPO-MEDROL [Concomitant]
     Active Substance: METHYLPREDNISOLONE ACETATE
     Dosage: 40 MG, ON 21JAN2017, 23JAN2017 AND 25JAN2017
     Route: 037
     Dates: start: 20170121, end: 20170125
  8. ARACYTINE [Suspect]
     Active Substance: CYTARABINE
     Indication: ACUTE BIPHENOTYPIC LEUKAEMIA
     Dosage: 40 MG, ON 21JAN2017, 23JAN2017 AND 25JAN2017
     Route: 037
     Dates: start: 20170121, end: 20170125
  9. ARACYTINE [Suspect]
     Active Substance: CYTARABINE
     Dosage: 945 MG, 2X/DAY
     Route: 037
     Dates: start: 20170227
  10. SPRYCEL [Suspect]
     Active Substance: DASATINIB
     Dosage: 100 MG, DAILY
     Route: 048
     Dates: start: 20170214, end: 20170414
  11. PENTACARINAT [Concomitant]
     Active Substance: PENTAMIDINE ISETHIONATE
     Indication: ANTIFUNGAL PROPHYLAXIS
     Dosage: UNK
  12. METHOTREXATE BIODIM [Concomitant]
     Active Substance: METHOTREXATE
     Dosage: 500 MG/M2, UNK
     Route: 037
     Dates: start: 20170227, end: 20170306
  13. SPRYCEL [Suspect]
     Active Substance: DASATINIB
     Dosage: 70 MG, DAILY
     Route: 048
  14. COVERSYL /00790703/ [Concomitant]
     Active Substance: PERINDOPRIL
     Indication: HYPERTENSION
     Dosage: UNK
  15. SPRYCEL [Suspect]
     Active Substance: DASATINIB
     Indication: ACUTE BIPHENOTYPIC LEUKAEMIA
     Dosage: 50 MG, 2X/DAY
     Route: 048
     Dates: start: 20170113, end: 20170123
  16. CELIPROLOL [Concomitant]
     Active Substance: CELIPROLOL
     Indication: HYPERTENSION
     Dosage: UNK
  17. CRESTOR [Concomitant]
     Active Substance: ROSUVASTATIN CALCIUM
     Indication: CARDIOVASCULAR EVENT PROPHYLAXIS
     Dosage: UNK
  18. SPRYCEL [Suspect]
     Active Substance: DASATINIB
     Dosage: 50 MG, DAILY
     Route: 048
     Dates: start: 20170201
  19. DEXAMETHASONE. [Concomitant]
     Active Substance: DEXAMETHASONE
     Dosage: UNK
     Route: 037
     Dates: start: 20170227

REACTIONS (3)
  - Febrile bone marrow aplasia [Unknown]
  - Respiratory distress [Recovered/Resolved]
  - Pleural effusion [Recovered/Resolved]

NARRATIVE: CASE EVENT DATE: 20170413
